FAERS Safety Report 19483296 (Version 1)
Quarter: 2021Q3

REPORT INFORMATION
  Report Type: Spontaneous
  Country: DK (occurrence: DK)
  Receive Date: 20210701
  Receipt Date: 20210701
  Transmission Date: 20211014
  Serious: Yes (Life-Threatening, Hospitalization, Other)
  Sender: FDA-Public Use
  Company Number: NVSC2021DK145964

PATIENT
  Age: 78 Year
  Sex: Female

DRUGS (41)
  1. ACETYLSALICYLIC ACID [Suspect]
     Active Substance: ASPIRIN
     Indication: PERIPHERAL ARTERIAL OCCLUSIVE DISEASE
     Dosage: 100 MG,QD (100 MG, QD)
     Route: 065
     Dates: start: 20200228, end: 20200814
  2. ACETYLSALICYLIC ACID [Suspect]
     Active Substance: ASPIRIN
     Indication: CARDIOVASCULAR EVENT PROPHYLAXIS
     Dosage: 75 MG, QD
     Route: 065
     Dates: start: 20140305, end: 20200227
  3. PARACETAMOL [Concomitant]
     Active Substance: ACETAMINOPHEN
     Indication: PRODUCT USED FOR UNKNOWN INDICATION
     Dosage: 4 G,QD (1 G, QID)
     Route: 065
     Dates: start: 20200720
  4. LACTIC ACID. [Concomitant]
     Active Substance: LACTIC ACID
     Indication: PRODUCT USED FOR UNKNOWN INDICATION
     Dosage: 8 DF,QD (4 DF, BID)
     Route: 065
     Dates: start: 20200727, end: 20200814
  5. DIMETHYLAMINODIPHENYLBUTEN HYDROCHLORIDE [Concomitant]
     Indication: PRODUCT USED FOR UNKNOWN INDICATION
     Dosage: 20 MG,QD (5 MG, QID)
     Route: 065
     Dates: start: 20200814
  6. POTASSIUM CHLORIDE. [Concomitant]
     Active Substance: POTASSIUM CHLORIDE
     Indication: PRODUCT USED FOR UNKNOWN INDICATION
     Dosage: 2250 MG,QD (2250 MG, QD)
     Route: 065
     Dates: start: 20200729, end: 20200729
  7. POTASSIUM CHLORIDE. [Concomitant]
     Active Substance: POTASSIUM CHLORIDE
     Dosage: 3 G
     Route: 065
     Dates: start: 20200801, end: 20200801
  8. RIVAROXABAN [Suspect]
     Active Substance: RIVAROXABAN
     Indication: CORONARY ARTERY DISEASE
     Dosage: 5 MG,QD (2.5 MG, BID)
     Route: 065
     Dates: start: 20200228, end: 20200719
  9. RIVAROXABAN [Suspect]
     Active Substance: RIVAROXABAN
     Indication: CARDIOVASCULAR EVENT PROPHYLAXIS
  10. GENTAMICIN. [Concomitant]
     Active Substance: GENTAMICIN
     Indication: PRODUCT USED FOR UNKNOWN INDICATION
     Dosage: 360 MG,QD (360 MG, QD)
     Route: 065
     Dates: start: 20200811, end: 20200812
  11. CEFUROXIN [Concomitant]
     Active Substance: CEFUROXIME
     Dosage: 9 G, QD (3 G, TID)
     Route: 065
     Dates: start: 20200726
  12. SALBUTAMOL [Concomitant]
     Active Substance: ALBUTEROL
     Indication: PRODUCT USED FOR UNKNOWN INDICATION
     Dosage: 2.5 MG,1 NECESSARY, (2.5 MG, PRN)
     Route: 065
     Dates: start: 20200719
  13. DIGOXIN. [Concomitant]
     Active Substance: DIGOXIN
     Indication: PRODUCT USED FOR UNKNOWN INDICATION
     Dosage: 250 UG,QD (250 ?G, QD)
     Route: 065
     Dates: start: 20200725
  14. PANTOPRAZOL [Concomitant]
     Active Substance: PANTOPRAZOLE SODIUM
     Indication: PRODUCT USED FOR UNKNOWN INDICATION
     Dosage: 40 MG,QD (40 MG, QD)
     Route: 065
     Dates: start: 20200810
  15. CIPROFLOXACIN. [Concomitant]
     Active Substance: CIPROFLOXACIN
     Indication: PRODUCT USED FOR UNKNOWN INDICATION
     Dosage: 8 MG,QD (4 MG, BID)
     Route: 065
     Dates: start: 20200814
  16. POTASSIUM CHLORIDE. [Concomitant]
     Active Substance: POTASSIUM CHLORIDE
     Dosage: 3 G
     Route: 065
     Dates: start: 20200803, end: 20200803
  17. DALTEPARIN [Concomitant]
     Active Substance: DALTEPARIN
     Dosage: 12500 IU, QD
     Route: 065
     Dates: start: 20200807, end: 20200814
  18. DALTEPARIN [Concomitant]
     Active Substance: DALTEPARIN
     Dosage: 5000 IU, QD
     Route: 065
     Dates: start: 20200726, end: 20200807
  19. HALOPERIDOL. [Concomitant]
     Active Substance: HALOPERIDOL
     Indication: PRODUCT USED FOR UNKNOWN INDICATION
     Dosage: 2.5 MG,1 NECESSARY, (2.5 MG, PRN)
     Route: 065
     Dates: start: 20200814, end: 20200817
  20. TRANEXAMIC ACID. [Concomitant]
     Active Substance: TRANEXAMIC ACID
     Indication: PRODUCT USED FOR UNKNOWN INDICATION
     Dosage: 2 G,QD (2 G, QD)
     Route: 065
     Dates: start: 20200811, end: 20200814
  21. POTASSIUM CHLORIDE. [Concomitant]
     Active Substance: POTASSIUM CHLORIDE
     Dosage: 1500 MG, QD
     Route: 065
     Dates: start: 20200809
  22. POTASSIUM CHLORIDE. [Concomitant]
     Active Substance: POTASSIUM CHLORIDE
     Dosage: 2250 MG, BID
     Route: 065
     Dates: start: 20200809
  23. OLANZAPIN [Concomitant]
     Active Substance: OLANZAPINE
     Indication: PRODUCT USED FOR UNKNOWN INDICATION
     Dosage: 5 MG,QD (5 MG, QD)
     Route: 065
     Dates: start: 20200814
  24. DALTEPARIN [Concomitant]
     Active Substance: DALTEPARIN
     Indication: PRODUCT USED FOR UNKNOWN INDICATION
     Dosage: 5000 UNK,QD (5000 IU, QD)
     Route: 065
     Dates: start: 20200814, end: 20200814
  25. CLOPIDOGREL [Concomitant]
     Active Substance: CLOPIDOGREL BISULFATE
     Indication: PRODUCT USED FOR UNKNOWN INDICATION
     Dosage: 75 MG,QD (75 MG, QD)
     Route: 065
     Dates: start: 20200727, end: 20200807
  26. MORPHIN [Concomitant]
     Active Substance: MORPHINE
     Indication: PRODUCT USED FOR UNKNOWN INDICATION
     Dosage: 2.5 MG,QD (2.5 MG, QD)
     Route: 065
     Dates: start: 20200720, end: 20200720
  27. RAMIPRIL. [Concomitant]
     Active Substance: RAMIPRIL
     Indication: PRODUCT USED FOR UNKNOWN INDICATION
     Dosage: 5 MG,QD (5 MG, QD)
     Route: 065
     Dates: start: 20200731
  28. METOPROLOL SUCCINATE. [Concomitant]
     Active Substance: METOPROLOL SUCCINATE
     Indication: PRODUCT USED FOR UNKNOWN INDICATION
     Dosage: 50 MG,QD (50 MG, QD)
     Route: 065
     Dates: start: 20171031
  29. CEFUROXIN [Concomitant]
     Active Substance: CEFUROXIME
     Indication: PRODUCT USED FOR UNKNOWN INDICATION
     Dosage: 4.5 G,QD (1.5 G, TID)
     Route: 065
     Dates: start: 20200719, end: 20200719
  30. CLOXACILLIN [Concomitant]
     Active Substance: CLOXACILLIN
     Indication: PRODUCT USED FOR UNKNOWN INDICATION
     Dosage: 2 G,QD (2 G, QD)
     Route: 065
     Dates: start: 20200811, end: 20200811
  31. MEROPENEM. [Concomitant]
     Active Substance: MEROPENEM
     Indication: PRODUCT USED FOR UNKNOWN INDICATION
     Dosage: 6 G,QD (2 G, TID)
     Route: 065
     Dates: start: 20200719, end: 20200726
  32. SPIRONOLACTON [Concomitant]
     Active Substance: SPIRONOLACTONE
     Indication: PRODUCT USED FOR UNKNOWN INDICATION
     Dosage: 25 MG,QD (25 MG, QD)
     Route: 065
     Dates: start: 20200804
  33. POTASSIUM CHLORIDE. [Concomitant]
     Active Substance: POTASSIUM CHLORIDE
     Dosage: 750 MG, QD
     Route: 065
     Dates: start: 20200730, end: 20200730
  34. ATORVASTATIN [Concomitant]
     Active Substance: ATORVASTATIN
     Indication: PRODUCT USED FOR UNKNOWN INDICATION
     Dosage: 80 MG,QD (80 MG, QD)
     Route: 065
     Dates: start: 20150708
  35. ALENDRONAT [Concomitant]
     Active Substance: ALENDRONATE SODIUM
     Indication: PRODUCT USED FOR UNKNOWN INDICATION
     Dosage: 70MG (70 MG)
     Route: 065
     Dates: start: 20151105
  36. AMLODIPIN [Concomitant]
     Active Substance: AMLODIPINE BESYLATE
     Indication: PRODUCT USED FOR UNKNOWN INDICATION
     Dosage: 10 MG,QD (10 MG, QD)
     Route: 065
     Dates: start: 20161130
  37. CEFUROXIM [Concomitant]
     Active Substance: CEFUROXIME
     Indication: PRODUCT USED FOR UNKNOWN INDICATION
     Dosage: 9 G,QD (3 G, TID)
     Route: 065
     Dates: start: 20200726
  38. ACETYLSALICYLIC ACID [Suspect]
     Active Substance: ASPIRIN
     Indication: CORONARY ARTERY DISEASE
     Dosage: 75 MG, QD
     Route: 065
     Dates: start: 20200815
  39. RIVAROXABAN [Suspect]
     Active Substance: RIVAROXABAN
     Indication: PERIPHERAL ARTERIAL OCCLUSIVE DISEASE
  40. RIFAMPICIN [Concomitant]
     Active Substance: RIFAMPIN
     Indication: PRODUCT USED FOR UNKNOWN INDICATION
     Dosage: 1200 MG,QD (600 MG, BID)
     Route: 065
     Dates: start: 20200726
  41. METHYLPREDNISOLON [Concomitant]
     Active Substance: METHYLPREDNISOLONE
     Indication: PRODUCT USED FOR UNKNOWN INDICATION
     Dosage: 80 MG,QD (80 MG, QD)
     Route: 065
     Dates: start: 20200720, end: 20200721

REACTIONS (9)
  - Sepsis [Recovered/Resolved]
  - Endocarditis [Recovered/Resolved]
  - Septic embolus [Unknown]
  - Atrioventricular block second degree [Recovered/Resolved]
  - Atrial fibrillation [Recovered/Resolved]
  - Meningitis [Recovered/Resolved]
  - Delirium [Recovered/Resolved]
  - Cerebral septic infarct [Recovered/Resolved]
  - Post procedural haemorrhage [Recovered/Resolved]

NARRATIVE: CASE EVENT DATE: 20200719
